FAERS Safety Report 12121292 (Version 2)
Quarter: 2016Q1

REPORT INFORMATION
  Report Type: Spontaneous
  Country: US (occurrence: US)
  Receive Date: 20160226
  Receipt Date: 20160226
  Transmission Date: 20160526
  Serious: No
  Sender: FDA-Public Use
  Company Number: US-ALLERGAN-1422296US

PATIENT
  Sex: Female

DRUGS (3)
  1. REFRESH OPTIVE [Suspect]
     Active Substance: CARBOXYMETHYLCELLULOSE SODIUM\GLYCERIN
     Indication: DRY EYE
     Dosage: 1-2 GTTS OU 6- 8 TIMES DAILY
     Route: 047
  2. REFRESH P.M. [Suspect]
     Active Substance: MINERAL OIL\PETROLATUM
     Indication: DRY EYE
     Dosage: UNK UNK, QHS
     Route: 047
  3. REFRESH OPTIVE SENSITIVE [Suspect]
     Active Substance: CARBOXYMETHYLCELLULOSE SODIUM\GLYCERIN
     Indication: DRY EYE

REACTIONS (5)
  - Eye irritation [Recovering/Resolving]
  - Therapeutic response decreased [Unknown]
  - Visual acuity reduced [Recovering/Resolving]
  - Dry eye [Recovering/Resolving]
  - Medication residue present [Recovering/Resolving]
